FAERS Safety Report 7430191-X (Version None)
Quarter: 2011Q2

REPORT INFORMATION
  Report Type: 
  Country: None (occurrence: None)
  Receive Date: 20110421
  Receipt Date: 20100225
  Transmission Date: 20111010
  Serious: No
  Sender: FDA-Public Use
  Company Number: US-ASTRAZENECA-2010SE08451

PATIENT
  Age: 85 Year
  Sex: Female
  Weight: 74.8 kg

DRUGS (4)
  1. ARICEPT [Concomitant]
     Indication: DEMENTIA ALZHEIMER'S TYPE
  2. DIGOXIN [Concomitant]
  3. ARTANE [Concomitant]
     Indication: PARKINSONISM
  4. TOPROL-XL [Suspect]
     Indication: HYPERTENSION
     Route: 048
     Dates: start: 20050101

REACTIONS (5)
  - NERVOUSNESS [None]
  - MOOD SWINGS [None]
  - DECREASED APPETITE [None]
  - CARDIAC DISORDER [None]
  - DIZZINESS [None]
